FAERS Safety Report 7702712-0 (Version None)
Quarter: 2011Q3

REPORT INFORMATION
  Report Type: 
  Country: None (occurrence: None)
  Receive Date: 20110817
  Receipt Date: 20110812
  Transmission Date: 20111222
  Serious: Yes (Death)
  Sender: FDA-Public Use
  Company Number: 201110590

PATIENT
  Age: 79 Year
  Sex: Male

DRUGS (3)
  1. BUPIVACAINE HCL [Concomitant]
  2. LIORESAL [Suspect]
     Indication: MUSCLE SPASTICITY
     Dosage: 65.98 MCG, DAILY, INTRATHECAL
     Route: 037
  3. DILAUDID [Concomitant]

REACTIONS (2)
  - CONDITION AGGRAVATED [None]
  - METASTATIC NEOPLASM [None]
